FAERS Safety Report 7271714-3 (Version None)
Quarter: 2011Q1

REPORT INFORMATION
  Report Type: 
  Country: None (occurrence: None)
  Receive Date: 20110203
  Receipt Date: 20110125
  Transmission Date: 20110831
  Serious: Yes (Death)
  Sender: FDA-Public Use
  Company Number: JP-SANOFI-AVENTIS-2011SA001425

PATIENT
  Age: 44 Year
  Sex: Female
  Weight: 54.6 kg

DRUGS (9)
  1. CHLORPHENIRAMINE MALEATE [Suspect]
     Route: 048
  2. SIBUTRAMINE HYDROCHLORIDE MONOHYDRATE [Suspect]
     Route: 048
  3. MYSLEE [Concomitant]
     Route: 048
  4. DESYREL [Concomitant]
     Route: 065
  5. BISACODYL [Suspect]
     Route: 048
  6. LIOTHYRONINE SODIUM [Suspect]
     Route: 048
  7. T4 [Suspect]
     Route: 048
  8. FUROSEMIDE [Suspect]
     Route: 048
  9. HYDROCHLOROTHIAZIDE [Suspect]
     Route: 048

REACTIONS (3)
  - PSEUDO-BARTTER SYNDROME [None]
  - NEPHROLITHIASIS [None]
  - DRUG ABUSE [None]
